FAERS Safety Report 10250382 (Version 1)
Quarter: 2014Q2

REPORT INFORMATION
  Report Type: Report from Study
  Country: US (occurrence: US)
  Receive Date: 20140620
  Receipt Date: 20140620
  Transmission Date: 20141212
  Serious: Yes (Other)
  Sender: FDA-Public Use
  Company Number: US-ABBVIE-14P-163-1245583-00

PATIENT
  Sex: Female
  Weight: 49.94 kg

DRUGS (3)
  1. LUPRON DEPOT [Suspect]
     Indication: ENDOMETRIOSIS
     Dates: start: 201305
  2. CITALOPRAM [Concomitant]
     Indication: PRODUCT USED FOR UNKNOWN INDICATION
  3. NEXPLANON [Concomitant]
     Indication: PRODUCT USED FOR UNKNOWN INDICATION
     Dosage: SUBDERMAL

REACTIONS (8)
  - Bladder disorder [Unknown]
  - Abdominal pain [Not Recovered/Not Resolved]
  - Hot flush [Unknown]
  - Salt craving [Recovered/Resolved]
  - Weight decreased [Recovered/Resolved]
  - Hypoaesthesia [Unknown]
  - Arthralgia [Recovered/Resolved]
  - Night sweats [Not Recovered/Not Resolved]
